APPROVED DRUG PRODUCT: SUCCINYLCHOLINE CHLORIDE
Active Ingredient: SUCCINYLCHOLINE CHLORIDE
Strength: 20MG/ML
Dosage Form/Route: INJECTABLE;INJECTION
Application: A212638 | Product #001
Applicant: BRECKENRIDGE PHARMACEUTICAL INC
Approved: Oct 9, 2019 | RLD: No | RS: No | Type: DISCN